FAERS Safety Report 6674722-6 (Version None)
Quarter: 2010Q2

REPORT INFORMATION
  Report Type: 
  Country: None (occurrence: None)
  Receive Date: 20100409
  Receipt Date: 20100330
  Transmission Date: 20101027
  Serious: Yes (Hospitalization, Other)
  Sender: FDA-Public Use
  Company Number: JP-PFIZER INC-2010038733

PATIENT
  Age: 55 Year
  Sex: Male

DRUGS (2)
  1. ZITHROMAX [Suspect]
     Indication: PYREXIA
     Dosage: UNK
     Route: 048
  2. ACETAMINOPHEN [Suspect]
     Indication: PYREXIA
     Dosage: UNK

REACTIONS (1)
  - EOSINOPHILIC PNEUMONIA ACUTE [None]
